FAERS Safety Report 12422763 (Version 1)
Quarter: 2016Q2

REPORT INFORMATION
  Report Type: Report from Study
  Country: GR (occurrence: GR)
  Receive Date: 20160601
  Receipt Date: 20160601
  Transmission Date: 20160815
  Serious: No
  Sender: FDA-Public Use
  Company Number: PHHY2016GR074986

PATIENT
  Sex: Male

DRUGS (4)
  1. APIXABAN [Concomitant]
     Active Substance: APIXABAN
     Indication: HYPERTENSION
     Dosage: 5 MG, UNK
     Route: 065
     Dates: start: 20140818
  2. PROPAFENONE. [Concomitant]
     Active Substance: PROPAFENONE
     Indication: ATRIAL FIBRILLATION
     Dosage: 300 MG, UNK
     Route: 065
     Dates: start: 20150608, end: 20160228
  3. TASIGNA [Suspect]
     Active Substance: NILOTINIB
     Indication: CHRONIC MYELOID LEUKAEMIA
     Dosage: 600 MG, QD
     Route: 048
     Dates: start: 20140718
  4. PROPAFENONE. [Concomitant]
     Active Substance: PROPAFENONE
     Dosage: 450 MG, UNK
     Route: 065
     Dates: start: 20160229

REACTIONS (1)
  - No adverse event [Unknown]
